FAERS Safety Report 5530854-7 (Version None)
Quarter: 2007Q4

REPORT INFORMATION
  Report Type: 
  Country: None (occurrence: None)
  Receive Date: 20071130
  Receipt Date: 20071108
  Transmission Date: 20080405
  Serious: Yes (Other)
  Sender: FDA-Public Use
  Company Number: US-SANOFI-SYNTHELABO-F01200600215

PATIENT
  Sex: Female
  Weight: 92.3 kg

DRUGS (13)
  1. ACTONEL [Concomitant]
     Dates: start: 20060123
  2. LISINOPRIL [Concomitant]
     Dates: start: 20060123
  3. ZOCOR [Concomitant]
     Dates: start: 20060123
  4. LASIX [Concomitant]
     Dates: start: 20060123
  5. ATENOLOL [Concomitant]
     Dates: start: 20060123
  6. ACTOS [Concomitant]
     Dates: start: 20060123
  7. DIOVAN [Concomitant]
     Dates: start: 20060123
  8. METFORMIN HCL [Concomitant]
     Dates: start: 20060123
  9. CA/MG OR PLACEBO [Suspect]
     Route: 042
     Dates: start: 20060104, end: 20060104
  10. BEVACIZUMAB [Suspect]
     Route: 042
     Dates: start: 20060104, end: 20060104
  11. LEUCOVORIN CALCIUM [Suspect]
     Route: 042
     Dates: start: 20060104, end: 20060104
  12. FLUOROURACIL [Suspect]
     Dosage: 2400 MG/M2 IV ON DAY 1 AND DAY 2, Q2W
     Route: 042
     Dates: start: 20060104, end: 20060105
  13. OXALIPLATIN [Suspect]
     Indication: COLORECTAL CANCER METASTATIC
     Route: 042
     Dates: start: 20060104, end: 20060104

REACTIONS (1)
  - SYNCOPE [None]
